FAERS Safety Report 18491032 (Version 2)
Quarter: 2021Q1

REPORT INFORMATION
  Report Type: Spontaneous
  Country: IN (occurrence: IN)
  Receive Date: 20201111
  Receipt Date: 20210323
  Transmission Date: 20210419
  Serious: Yes (Other)
  Sender: FDA-Public Use
  Company Number: IN-PFIZER INC-2018185449

PATIENT
  Age: 40 Year
  Sex: Female

DRUGS (4)
  1. ZOBONE [Concomitant]
     Active Substance: ZOLEDRONIC ACID
     Dosage: 4 MG, EVERY 3 MONTHS (ONCE IN 3 MONTHS IV OVER 30 MINUTES)
     Route: 042
  2. NEUROBION FORTE [CYANOCOBALAMIN;PYRIDOXINE HYDROCHLORIDE;THIAMINE DISU [Concomitant]
     Dosage: 1 DF, 1X/DAY
     Route: 048
  3. AROMASIN [Suspect]
     Active Substance: EXEMESTANE
     Indication: BREAST CANCER METASTATIC
     Dosage: 25 MG, 1X/DAY
     Route: 048
     Dates: start: 20170117
  4. SHELCAL [Concomitant]
     Active Substance: CALCIUM CARBONATE\CHOLECALCIFEROL
     Dosage: 1 DF, 1X/DAY (1X15)
     Route: 048

REACTIONS (5)
  - Rash papular [Unknown]
  - Pain in extremity [Unknown]
  - Back pain [Recovering/Resolving]
  - Immunodeficiency [Unknown]
  - Musculoskeletal chest pain [Unknown]
